FAERS Safety Report 6921652-8 (Version None)
Quarter: 2010Q3

REPORT INFORMATION
  Report Type: 
  Country: None (occurrence: None)
  Receive Date: 20100812
  Receipt Date: 20100802
  Transmission Date: 20110219
  Serious: Yes (Other)
  Sender: FDA-Public Use
  Company Number: US-ELI_LILLY_AND_COMPANY-US201008000738

PATIENT
  Age: 59 Year
  Sex: Female

DRUGS (6)
  1. CYMBALTA [Suspect]
     Indication: FIBROMYALGIA
  2. LYRICA [Concomitant]
     Dosage: 75 MG, DAILY (1/D)
  3. SYNTHROID [Concomitant]
     Dosage: 75 UG, UNK
  4. LEXAPRO [Concomitant]
  5. MOBIC [Concomitant]
  6. ALIGN [Concomitant]

REACTIONS (8)
  - CRYING [None]
  - DEPRESSION [None]
  - DEPRESSIVE SYMPTOM [None]
  - FEELING HOT [None]
  - FEELINGS OF WORTHLESSNESS [None]
  - PAIN IN EXTREMITY [None]
  - SOMNOLENCE [None]
  - WEIGHT INCREASED [None]
